FAERS Safety Report 12077152 (Version 1)
Quarter: 2016Q1

REPORT INFORMATION
  Report Type: Spontaneous
  Country: US (occurrence: US)
  Receive Date: 20160215
  Receipt Date: 20160215
  Transmission Date: 20160526
  Serious: Yes (Hospitalization)
  Sender: FDA-Public Use
  Company Number: US-GLAXOSMITHKLINE-US2016GSK019482

PATIENT
  Age: 26 Year
  Sex: Female

DRUGS (3)
  1. NICOTINE. [Suspect]
     Active Substance: NICOTINE
     Indication: RAPID EYE MOVEMENTS SLEEP ABNORMAL
     Dosage: 14 MG, UNK ON NEXT DAY MORNING
     Route: 062
  2. NICOTINE. [Suspect]
     Active Substance: NICOTINE
     Dosage: 7 UNK, UNK
     Route: 062
  3. NICOTINE. [Suspect]
     Active Substance: NICOTINE
     Indication: SLEEP DISORDER
     Dosage: 7 MG, UNK BEFORE BED TIME
     Route: 062

REACTIONS (3)
  - Myalgia [Recovered/Resolved]
  - Nausea [Recovered/Resolved]
  - Anxiety [Recovered/Resolved]
